FAERS Safety Report 5126202-7 (Version None)
Quarter: 2006Q3

REPORT INFORMATION
  Report Type: 
  Country: None (occurrence: None)
  Receive Date: 20060825
  Receipt Date: 20060320
  Transmission Date: 20061208
  Serious: Yes (Hospitalization)
  Sender: FDA-Public Use
  Company Number: US017145

PATIENT
  Age: 15 Year
  Sex: Female
  Weight: 52.1637 kg

DRUGS (5)
  1. GABITRIL [Suspect]
     Indication: COMPLEX PARTIAL SEIZURES
     Dates: start: 20030101, end: 20050501
  2. GABITRIL [Suspect]
     Indication: COMPLEX PARTIAL SEIZURES
     Dosage: 8 MG TID ORAL
     Route: 048
     Dates: start: 20050501
  3. LAMICTAL [Suspect]
     Indication: COMPLEX PARTIAL SEIZURES
     Dosage: 350 MG QD ORAL
     Route: 048
     Dates: start: 19950101
  4. LEXAPRO [Concomitant]
  5. VITAMIN SUPPLEMENTS [Concomitant]

REACTIONS (1)
  - COMPLEX PARTIAL SEIZURES [None]
